FAERS Safety Report 7166303-5 (Version None)
Quarter: 2010Q4

REPORT INFORMATION
  Report Type: 
  Country: None (occurrence: None)
  Receive Date: 20101201
  Receipt Date: 20101116
  Transmission Date: 20110411
  Serious: Yes (Other)
  Sender: FDA-Public Use
  Company Number: 022013

PATIENT
  Age: 45 Year
  Sex: Female

DRUGS (1)
  1. CIMZIA [Suspect]
     Dosage: (DOSE SUBCUTANEOUS)
     Route: 058
     Dates: start: 20100601

REACTIONS (1)
  - THROAT CANCER [None]
